FAERS Safety Report 8605304 (Version 4)
Quarter: 2012Q4

REPORT INFORMATION
  Report Type: 
  Country: JP (occurrence: JP)
  Receive Date: 20120608
  Receipt Date: 20121026
  Transmission Date: 20130627
  Serious: Yes (Hospitalization)
  Sender: FDA-Public Use
  Company Number: JP-ROCHE-1074482

PATIENT
  Age: 43 Year
  Sex: Female
  Weight: 100 kg

DRUGS (13)
  1. AVASTIN [Suspect]
     Indication: BREAST CANCER METASTATIC
     Route: 041
     Dates: start: 20120501, end: 20120501
  2. TAXOL [Suspect]
     Indication: BREAST CANCER METASTATIC
     Dosage: Three one yasu
     Route: 041
     Dates: start: 20120501, end: 20120515
  3. LASIX [Concomitant]
     Indication: PLEURAL EFFUSION
     Route: 048
     Dates: end: 20120506
  4. BROCIN [Concomitant]
     Indication: COUGH
     Dosage: Dosage is uncertain
     Route: 048
     Dates: start: 20120501
  5. DECADRON [Concomitant]
     Indication: PROPHYLAXIS OF NAUSEA AND VOMITING
     Route: 048
     Dates: start: 20120502, end: 20120502
  6. DECADRON [Concomitant]
     Indication: PROPHYLAXIS OF NAUSEA AND VOMITING
     Route: 048
     Dates: start: 20120509, end: 20120509
  7. DECADRON [Concomitant]
     Indication: PROPHYLAXIS OF NAUSEA AND VOMITING
     Route: 048
     Dates: start: 20120516, end: 20120516
  8. PRIMPERAN (JAPAN) [Concomitant]
     Indication: PROPHYLAXIS OF NAUSEA AND VOMITING
     Route: 048
     Dates: start: 20120502, end: 20120508
  9. PRIMPERAN (JAPAN) [Concomitant]
     Indication: PROPHYLAXIS OF NAUSEA AND VOMITING
     Route: 048
     Dates: start: 20120509, end: 20120515
  10. HUMULIN N [Concomitant]
     Indication: DIABETES MELLITUS
     Dosage: Dosage is uncertain.
     Route: 058
  11. VENA [Concomitant]
     Indication: PROPHYLAXIS
     Route: 048
     Dates: start: 20120501, end: 20120501
  12. VENA [Concomitant]
     Indication: PROPHYLAXIS
     Route: 048
     Dates: start: 20120508, end: 20120508
  13. VENA [Concomitant]
     Indication: PROPHYLAXIS
     Route: 048
     Dates: start: 20120515, end: 20120515

REACTIONS (2)
  - Interstitial lung disease [Recovering/Resolving]
  - Pneumothorax [Recovered/Resolved]
